FAERS Safety Report 14217845 (Version 1)
Quarter: 2017Q4

REPORT INFORMATION
  Report Type: Spontaneous
  Country: BE (occurrence: BE)
  Receive Date: 20171123
  Receipt Date: 20171123
  Transmission Date: 20180321
  Serious: Yes (Other)
  Sender: FDA-Public Use
  Company Number: BE-ROCHE-2023510

PATIENT
  Age: 39 Year
  Sex: Female

DRUGS (4)
  1. MABTHERA [Suspect]
     Active Substance: RITUXIMAB
     Indication: POLYNEUROPATHY
  2. CELLCEPT [Suspect]
     Active Substance: MYCOPHENOLATE MOFETIL\MYCOPHENOLATE MOFETIL HYDROCHLORIDE
     Indication: SJOGREN^S SYNDROME
     Route: 065
     Dates: start: 20130703, end: 201312
  3. CELLCEPT [Suspect]
     Active Substance: MYCOPHENOLATE MOFETIL\MYCOPHENOLATE MOFETIL HYDROCHLORIDE
     Indication: POLYNEUROPATHY
     Route: 065
     Dates: start: 201402
  4. MABTHERA [Suspect]
     Active Substance: RITUXIMAB
     Indication: SJOGREN^S SYNDROME
     Route: 065
     Dates: start: 20150324

REACTIONS (8)
  - Intentional product use issue [Unknown]
  - Polyneuropathy [Unknown]
  - Off label use [Unknown]
  - Sjogren^s syndrome [Unknown]
  - Pancytopenia [Unknown]
  - Abdominal pain [Unknown]
  - Sacroiliac fracture [Unknown]
  - Fall [Unknown]

NARRATIVE: CASE EVENT DATE: 201312
